FAERS Safety Report 8326172-4 (Version None)
Quarter: 2012Q2

REPORT INFORMATION
  Report Type: 
  Country: None (occurrence: None)
  Receive Date: 20120501
  Receipt Date: 20120420
  Transmission Date: 20120825
  Serious: Yes (Life-Threatening, Hospitalization)
  Sender: FDA-Public Use
  Company Number: HK-BRISTOL-MYERS SQUIBB COMPANY-16528812

PATIENT
  Age: 60 Year
  Sex: Male
  Weight: 55 kg

DRUGS (4)
  1. FLUOROURACIL [Suspect]
     Indication: NASOPHARYNGEAL CANCER
     Dosage: RECENT INF:7APR12
     Dates: start: 20120403
  2. FILGRASTIM [Concomitant]
     Dates: start: 20120410, end: 20120414
  3. CISPLATIN [Suspect]
     Indication: NASOPHARYNGEAL CANCER
     Dosage: RECENT INF:7APR12
     Dates: start: 20120403
  4. DOCETAXEL [Suspect]
     Indication: NASOPHARYNGEAL CANCER
     Dosage: RECENT INF:7APR12
     Dates: start: 20120403

REACTIONS (3)
  - LEUKOPENIA [None]
  - HYPONATRAEMIA [None]
  - SEPSIS [None]
